FAERS Safety Report 20059007 (Version 5)
Quarter: 2022Q2

REPORT INFORMATION
  Report Type: Spontaneous
  Country: PT (occurrence: PT)
  Receive Date: 20211111
  Receipt Date: 20220518
  Transmission Date: 20220720
  Serious: Yes (Life-Threatening, Hospitalization, Disabling, Other)
  Sender: FDA-Public Use
  Company Number: PT-MYLANLABS-2021M1080214

PATIENT
  Age: 78 Year
  Sex: Female

DRUGS (5)
  1. HYDROCHLOROTHIAZIDE\LISINOPRIL [Suspect]
     Active Substance: HYDROCHLOROTHIAZIDE\LISINOPRIL
     Indication: Hypertension
     Dosage: UNK
  2. HYDROCHLOROTHIAZIDE\LISINOPRIL [Suspect]
     Active Substance: HYDROCHLOROTHIAZIDE\LISINOPRIL
     Dosage: UNK (RECENTLY INITIATED A TREATMENT WITH LISINOPRIL)
     Route: 048
  3. LISINOPRIL [Suspect]
     Active Substance: LISINOPRIL
     Indication: Hypertension
     Dosage: UNK
     Route: 065
  4. HYDROCHLOROTHIAZIDE [Concomitant]
     Active Substance: HYDROCHLOROTHIAZIDE
     Indication: Hypertension
     Dosage: UNK
     Route: 065
  5. ACITRETIN [Concomitant]
     Active Substance: ACITRETIN
     Indication: Product used for unknown indication
     Dosage: UNK
     Route: 065

REACTIONS (14)
  - Retroperitoneal abscess [Unknown]
  - Intestinal fistula [Recovering/Resolving]
  - Psoriasis [Recovering/Resolving]
  - Multiple organ dysfunction syndrome [Unknown]
  - Gastrointestinal necrosis [Recovering/Resolving]
  - Erythrodermic psoriasis [Recovering/Resolving]
  - Dry eye [Unknown]
  - Mucosal inflammation [Unknown]
  - Hypothermia [Unknown]
  - Poor peripheral circulation [Unknown]
  - Hypotension [Unknown]
  - Distributive shock [Unknown]
  - Skin necrosis [Unknown]
  - Erythema [Recovering/Resolving]
